FAERS Safety Report 6569567-1 (Version None)
Quarter: 2010Q1

REPORT INFORMATION
  Report Type: 
  Country: None (occurrence: None)
  Receive Date: 20100204
  Receipt Date: 20100125
  Transmission Date: 20100710
  Serious: Yes (Hospitalization)
  Sender: FDA-Public Use
  Company Number: BR-ABBOTT-10P-020-0621962-00

PATIENT
  Sex: Female

DRUGS (3)
  1. HUMIRA [Suspect]
     Indication: CROHN'S DISEASE
     Route: 058
     Dates: start: 20090101
  2. UNKNOWN CORTICOID [Concomitant]
     Indication: CROHN'S DISEASE
  3. MESALAZINE [Concomitant]
     Indication: CROHN'S DISEASE

REACTIONS (4)
  - FEMALE GENITAL TRACT FISTULA [None]
  - GASTROINTESTINAL INFLAMMATION [None]
  - PAIN [None]
  - PYREXIA [None]
